FAERS Safety Report 12780598 (Version 1)
Quarter: 2016Q3

REPORT INFORMATION
  Report Type: Spontaneous
  Country: US (occurrence: US)
  Receive Date: 20160926
  Receipt Date: 20160926
  Transmission Date: 20161109
  Serious: Yes (Life-Threatening, Hospitalization, Disabling)
  Sender: FDA-Public Use
  Company Number: None

PATIENT
  Age: 35 Year
  Weight: 65.32 kg

DRUGS (3)
  1. BOTOX [Suspect]
     Active Substance: ONABOTULINUMTOXINA
     Indication: PAIN
     Dosage: 280 UNITS INJECTION
     Dates: start: 20160728, end: 20160728
  2. XANAX [Concomitant]
     Active Substance: ALPRAZOLAM
  3. PROMETHASINE [Concomitant]

REACTIONS (1)
  - Dysphagia [None]

NARRATIVE: CASE EVENT DATE: 20160821
